FAERS Safety Report 5918688-2 (Version None)
Quarter: 2008Q4

REPORT INFORMATION
  Report Type: 
  Country: None (occurrence: None)
  Receive Date: 20081015
  Receipt Date: 20080728
  Transmission Date: 20090506
  Serious: No
  Sender: FDA-Public Use
  Company Number: US-ASTRAZENECA-2008UW11399

PATIENT
  Age: 15 Year
  Sex: Male
  Weight: 66 kg

DRUGS (3)
  1. SYMBICORT [Suspect]
     Indication: ASTHMA
     Dosage: 80/4.5
     Route: 055
  2. SYMBICORT [Suspect]
     Dosage: 80/4.5
     Route: 055
  3. ALBUTEROL [Concomitant]
     Indication: ASTHMA

REACTIONS (2)
  - APHTHOUS STOMATITIS [None]
  - PULMONARY FUNCTION TEST DECREASED [None]
